FAERS Safety Report 5693033-9 (Version None)
Quarter: 2008Q2

REPORT INFORMATION
  Report Type: 
  Country: None (occurrence: None)
  Receive Date: 20080401
  Receipt Date: 20080401
  Transmission Date: 20081010
  Serious: Yes (Life-Threatening, Hospitalization)
  Sender: FDA-Public Use
  Company Number: None

PATIENT
  Age: 35 Year
  Sex: Male
  Weight: 77.1115 kg

DRUGS (4)
  1. SINGULAIR [Suspect]
     Indication: ASTHMA
     Dosage: 10 MG DAILY PO
     Route: 048
     Dates: start: 20060101
  2. SEROQUEL [Concomitant]
  3. TRAZODONE HCL [Concomitant]
  4. ADVAIR HFA [Concomitant]

REACTIONS (1)
  - SUICIDE ATTEMPT [None]
